FAERS Safety Report 6669364-2 (Version None)
Quarter: 2010Q2

REPORT INFORMATION
  Report Type: 
  Country: None (occurrence: None)
  Receive Date: 20100406
  Receipt Date: 20100330
  Transmission Date: 20101027
  Serious: Yes (Hospitalization)
  Sender: FDA-Public Use
  Company Number: A0852659A

PATIENT
  Age: 48 Year
  Sex: Female

DRUGS (2)
  1. VERAMYST [Suspect]
     Indication: SEASONAL ALLERGY
     Route: 045
  2. CETIRIZINE HYDROCHLORIDE [Concomitant]

REACTIONS (5)
  - DIZZINESS [None]
  - HEADACHE [None]
  - NAUSEA [None]
  - PHOTOSENSITIVITY REACTION [None]
  - VISUAL IMPAIRMENT [None]
